FAERS Safety Report 17907519 (Version 1)
Quarter: 2020Q2

REPORT INFORMATION
  Report Type: Spontaneous
  Country: FR (occurrence: FR)
  Receive Date: 20200617
  Receipt Date: 20200617
  Transmission Date: 20200714
  Serious: Yes (Hospitalization)
  Sender: FDA-Public Use
  Company Number: FR-009507513-2006FRA003361

PATIENT
  Age: 84 Year
  Sex: Female
  Weight: 67.5 kg

DRUGS (7)
  1. INVANZ [Suspect]
     Active Substance: ERTAPENEM SODIUM
     Indication: ESCHERICHIA PYELONEPHRITIS
     Route: 042
     Dates: start: 20180504, end: 20180515
  2. MOVICOL [Concomitant]
     Active Substance: POLYETHYLENE GLYCOL 3350\POTASSIUM CHLORIDE\SODIUM BICARBONATE\SODIUM CHLORIDE
  3. BISOCE [Concomitant]
     Active Substance: BISOPROLOL
  4. LEVOCARNIL [Concomitant]
     Active Substance: LEVOCARNITINE
  5. XARELTO [Concomitant]
     Active Substance: RIVAROXABAN
  6. TRIMEBUTINE [Concomitant]
     Active Substance: TRIMEBUTINE
  7. FUROSEMIDE. [Concomitant]
     Active Substance: FUROSEMIDE

REACTIONS (4)
  - Myoclonus [Recovered/Resolved]
  - Dysarthria [Recovered/Resolved]
  - Disturbance in attention [Recovered/Resolved]
  - Dyskinesia [Recovered/Resolved]

NARRATIVE: CASE EVENT DATE: 20180509
